FAERS Safety Report 20897910 (Version 2)
Quarter: 2022Q2

REPORT INFORMATION
  Report Type: Spontaneous
  Country: US (occurrence: US)
  Receive Date: 20220531
  Receipt Date: 20220608
  Transmission Date: 20220720
  Serious: No
  Sender: FDA-Public Use
  Company Number: US-PFIZER INC-202200771327

PATIENT
  Age: 67 Year
  Sex: Female
  Weight: 68.04 kg

DRUGS (2)
  1. PAXLOVID [Suspect]
     Active Substance: NIRMATRELVIR\RITONAVIR
     Indication: COVID-19 treatment
     Dosage: UNK
     Dates: start: 202205, end: 20220526
  2. WAL-TUSSIN DM [Concomitant]
     Active Substance: DEXTROMETHORPHAN HYDROBROMIDE\GUAIFENESIN
     Dosage: UNK

REACTIONS (4)
  - Hunger [Unknown]
  - Tremor [Unknown]
  - Dizziness [Unknown]
  - Burning sensation [Unknown]

NARRATIVE: CASE EVENT DATE: 20220526
